FAERS Safety Report 5148887-1 (Version None)
Quarter: 2006Q4

REPORT INFORMATION
  Report Type: 
  Country: None (occurrence: None)
  Receive Date: 20061113
  Receipt Date: 20061102
  Transmission Date: 20070319
  Serious: Yes (Other)
  Sender: FDA-Public Use
  Company Number: DE-JNJFOC-20061100450

PATIENT
  Age: 7 Decade
  Sex: Female

DRUGS (4)
  1. REMICADE [Suspect]
     Indication: COLITIS ULCERATIVE
     Route: 042
  2. CORTISONE ACETATE [Concomitant]
     Indication: PROPHYLAXIS
     Route: 065
  3. HEPARIN [Concomitant]
     Indication: PROPHYLAXIS
     Route: 065
  4. DIFLUCAN [Concomitant]
     Indication: ORAL CANDIDIASIS
     Route: 042

REACTIONS (1)
  - PETECHIAE [None]
